FAERS Safety Report 8368475-3 (Version None)
Quarter: 2012Q2

REPORT INFORMATION
  Report Type: 
  Country: None (occurrence: None)
  Receive Date: 20120518
  Receipt Date: 20120504
  Transmission Date: 20120825
  Serious: Yes (Hospitalization, Disabling)
  Sender: FDA-Public Use
  Company Number: NL-AMGEN-NLDSP2012029777

PATIENT
  Age: 69 Year
  Sex: Male

DRUGS (2)
  1. ASCAL                              /00002702/ [Concomitant]
     Dosage: UNK
  2. ENBREL [Suspect]
     Indication: RHEUMATOID ARTHRITIS
     Dosage: 50 MG, WEEKLY
     Dates: start: 20090101

REACTIONS (1)
  - EMBOLISM [None]
